FAERS Safety Report 5900200-5 (Version None)
Quarter: 2008Q3

REPORT INFORMATION
  Report Type: 
  Country: None (occurrence: None)
  Receive Date: 20080926
  Receipt Date: 20080925
  Transmission Date: 20090109
  Serious: Yes (Hospitalization)
  Sender: FDA-Public Use
  Company Number: DE-BRISTOL-MYERS SQUIBB COMPANY-14337992

PATIENT
  Age: 37 Year
  Sex: Female
  Weight: 46 kg

DRUGS (8)
  1. ORENCIA [Suspect]
     Indication: RHEUMATOID ARTHRITIS
     Dosage: EVENT OCCURED AFTER 2ND INFUSION
     Route: 042
     Dates: start: 20080912
  2. PREDNISOLONE [Concomitant]
     Indication: RHEUMATOID ARTHRITIS
     Route: 048
  3. ARAVA [Concomitant]
     Indication: RHEUMATOID ARTHRITIS
     Route: 048
  4. IBUPROFEN [Concomitant]
     Indication: RHEUMATOID ARTHRITIS
     Route: 048
  5. ACTONEL [Concomitant]
     Indication: OSTEOPOROSIS
     Route: 048
  6. CALCIUM GLUCONATE [Concomitant]
     Indication: OSTEOPOROSIS
     Route: 048
  7. VITAMIN D3 [Concomitant]
     Indication: OSTEOPOROSIS
     Route: 048
  8. OMEPRAZOLE [Concomitant]
     Route: 048

REACTIONS (1)
  - HAEMATOMA [None]
